FAERS Safety Report 6988222-7 (Version None)
Quarter: 2010Q3

REPORT INFORMATION
  Report Type: 
  Country: None (occurrence: None)
  Receive Date: 20100916
  Receipt Date: 20100907
  Transmission Date: 20110219
  Serious: Yes (Hospitalization)
  Sender: FDA-Public Use
  Company Number: GXKR2010US10157

PATIENT
  Age: 59 Year
  Sex: Female

DRUGS (6)
  1. CIMETIDINE (NGX) [Suspect]
     Indication: GASTROOESOPHAGEAL REFLUX DISEASE
     Route: 065
  2. METFORMIN HCL [Interacting]
     Indication: TYPE 2 DIABETES MELLITUS
     Route: 065
  3. FENOFIBRATE [Concomitant]
  4. LISINOPRIL [Concomitant]
  5. FLUVASTATIN [Concomitant]
  6. ATENOLOL [Concomitant]

REACTIONS (8)
  - DIALYSIS [None]
  - DIARRHOEA [None]
  - DRUG INTERACTION [None]
  - LACTIC ACIDOSIS [None]
  - NAUSEA [None]
  - PANCREATITIS ACUTE [None]
  - RENAL FAILURE ACUTE [None]
  - VOMITING [None]
